FAERS Safety Report 19056567 (Version 1)
Quarter: 2021Q1

REPORT INFORMATION
  Report Type: Spontaneous
  Country: US (occurrence: US)
  Receive Date: 20210325
  Receipt Date: 20210325
  Transmission Date: 20210420
  Serious: Yes (Other)
  Sender: FDA-Public Use
  Company Number: US-SUN PHARMACEUTICAL INDUSTRIES LTD-2021R1-287506

PATIENT
  Age: 66 Year
  Sex: Female

DRUGS (3)
  1. WARFARIN [Interacting]
     Active Substance: WARFARIN
     Indication: PROPHYLAXIS
     Dosage: 5 MILLIGRAM, DAILY
     Route: 048
  2. WARFARIN [Interacting]
     Active Substance: WARFARIN
     Dosage: 4 MILLIGRAM, DAILY
     Route: 048
  3. SULPHAMETHOXAZOLE/TRIMETHOPRIM [Suspect]
     Active Substance: SULFAMETHOXAZOLE\TRIMETHOPRIM
     Indication: PYELONEPHRITIS
     Dosage: 1 TABLET, BID FOR 14 DAYS
     Route: 065

REACTIONS (3)
  - Rectal haemorrhage [Unknown]
  - Drug interaction [Unknown]
  - Epistaxis [Unknown]
